FAERS Safety Report 6056580-6 (Version None)
Quarter: 2009Q1

REPORT INFORMATION
  Report Type: 
  Country: None (occurrence: None)
  Receive Date: 20090126
  Receipt Date: 20090112
  Transmission Date: 20090719
  Serious: Yes (Hospitalization)
  Sender: FDA-Public Use
  Company Number: 2009SP000091

PATIENT
  Sex: Female

DRUGS (10)
  1. XOPENEX [Suspect]
     Indication: CHRONIC OBSTRUCTIVE PULMONARY DISEASE
     Dosage: 1.25 MG / 3ML; TID; INHALATION
     Route: 055
     Dates: start: 20060101, end: 20080101
  2. IPRATROPIUM BROMIDE [Suspect]
     Indication: CHRONIC OBSTRUCTIVE PULMONARY DISEASE
     Dosage: TID; INHALATION
     Dates: start: 20060101, end: 20090101
  3. DIGOXIN [Suspect]
     Indication: CARDIAC FIBRILLATION
     Dates: start: 20060101, end: 20080101
  4. LASIX [Suspect]
     Indication: ATRIAL FIBRILLATION
     Dosage: INTRAVENOUS, INTRAVENOUS
     Route: 042
     Dates: start: 20070101, end: 20070101
  5. LASIX [Suspect]
     Indication: ATRIAL FIBRILLATION
     Dosage: INTRAVENOUS, INTRAVENOUS
     Route: 042
     Dates: start: 20070101, end: 20070101
  6. COUMADIN [Concomitant]
  7. SINGULAIR [Concomitant]
  8. PULMICORT-100 [Concomitant]
  9. COMBIVENT [Concomitant]
  10. ALBUTEROL [Concomitant]

REACTIONS (11)
  - ARTHRALGIA [None]
  - ATRIAL FIBRILLATION [None]
  - CONSTIPATION [None]
  - DOCUMENTED HYPERSENSITIVITY TO ADMINISTERED DRUG [None]
  - GAIT DISTURBANCE [None]
  - JOINT STIFFNESS [None]
  - MUSCULOSKELETAL STIFFNESS [None]
  - MYALGIA [None]
  - NAUSEA [None]
  - PARALYSIS [None]
  - PNEUMONIA [None]
